FAERS Safety Report 22116551 (Version 1)
Quarter: 2023Q1

REPORT INFORMATION
  Report Type: Spontaneous
  Country: US (occurrence: None)
  Receive Date: 20230320
  Receipt Date: 20230320
  Transmission Date: 20230417
  Serious: Yes (Other)
  Sender: FDA-Public Use
  Company Number: None

PATIENT
  Age: 64 Year
  Sex: Female
  Weight: 101.25 kg

DRUGS (5)
  1. FLOVENT DISKUS [Suspect]
     Active Substance: FLUTICASONE PROPIONATE
     Indication: Product substitution
     Dosage: OTHER QUANTITY : 1 BLISTER;?FREQUENCY : EVERY 12 HOURS;?
     Route: 055
  2. FLUTICASONE PROPIONATE [Concomitant]
     Active Substance: FLUTICASONE PROPIONATE
  3. ALBUTEROL [Concomitant]
     Active Substance: ALBUTEROL
  4. VITAMIN D NOS [Concomitant]
     Active Substance: VITAMIN D NOS
  5. OTC daily gummy [Concomitant]

REACTIONS (4)
  - Asthma [None]
  - Heart rate increased [None]
  - Dysphagia [None]
  - Therapy cessation [None]

NARRATIVE: CASE EVENT DATE: 20230309
